FAERS Safety Report 10029613 (Version 1)
Quarter: 2014Q1

REPORT INFORMATION
  Report Type: Spontaneous
  Country: US (occurrence: None)
  Receive Date: 20140320
  Receipt Date: 20140320
  Transmission Date: 20141002
  Serious: Yes (Hospitalization)
  Sender: FDA-Public Use
  Company Number: None

PATIENT
  Sex: Female

DRUGS (1)
  1. FORTEO 600MCG LILLY [Suspect]
     Indication: OSTEOPOROSIS
     Dates: start: 201402

REACTIONS (3)
  - Cardiac flutter [None]
  - Dyspnoea [None]
  - Pneumonia [None]
